FAERS Safety Report 8307911-5 (Version None)
Quarter: 2012Q2

REPORT INFORMATION
  Report Type: 
  Country: None (occurrence: None)
  Receive Date: 20120424
  Receipt Date: 20120420
  Transmission Date: 20120825
  Serious: No
  Sender: FDA-Public Use
  Company Number: US-PFIZER INC-2012098554

PATIENT
  Sex: Female
  Weight: 70.748 kg

DRUGS (4)
  1. LYRICA [Suspect]
     Indication: NEURALGIA
     Dosage: UNK
     Route: 048
  2. LYRICA [Suspect]
     Dosage: 100 MG, 2X/DAY
     Route: 048
  3. LYRICA [Suspect]
     Indication: FIBROMYALGIA
     Dosage: 100 MG, 3X/DAY
     Route: 048
  4. LYRICA [Suspect]
     Indication: ANXIETY
     Dosage: UNK

REACTIONS (5)
  - DRUG INEFFECTIVE [None]
  - MALAISE [None]
  - FEELING ABNORMAL [None]
  - EMOTIONAL DISORDER [None]
  - GENERAL PHYSICAL HEALTH DETERIORATION [None]
